FAERS Safety Report 10304880 (Version 1)
Quarter: 2014Q3

REPORT INFORMATION
  Report Type: Spontaneous
  Country: US (occurrence: None)
  Receive Date: 20140711
  Receipt Date: 20140711
  Transmission Date: 20150326
  Serious: Yes (Other)
  Sender: FDA-Public Use
  Company Number: None

PATIENT
  Age: 61 Year
  Sex: Female

DRUGS (1)
  1. NEXAVAR [Suspect]
     Active Substance: SORAFENIB
     Indication: HEPATIC CANCER
     Route: 048
     Dates: start: 20140618, end: 20140709

REACTIONS (4)
  - Pruritus [None]
  - Head discomfort [None]
  - Skin fissures [None]
  - Oral disorder [None]

NARRATIVE: CASE EVENT DATE: 20140710
